FAERS Safety Report 25919027 (Version 1)
Quarter: 2025Q4

REPORT INFORMATION
  Report Type: Report from Study
  Country: US (occurrence: US)
  Receive Date: 20251014
  Receipt Date: 20251014
  Transmission Date: 20260118
  Serious: No
  Sender: AVERITAS
  Company Number: US-GRUNENTHAL-2025-123741

PATIENT
  Sex: Female

DRUGS (1)
  1. QUTENZA [Suspect]
     Active Substance: CAPSAICIN
     Indication: Product used for unknown indication
     Dosage: UNK, ONCE
     Route: 061
     Dates: start: 202508, end: 202508

REACTIONS (2)
  - Gait disturbance [Unknown]
  - Joint dislocation [Unknown]

NARRATIVE: CASE EVENT DATE: 20250101
